FAERS Safety Report 9295646 (Version 1)
Quarter: 2013Q2

REPORT INFORMATION
  Report Type: Spontaneous
  Country: US (occurrence: None)
  Receive Date: 20130514
  Receipt Date: 20130514
  Transmission Date: 20140414
  Serious: Yes (Other)
  Sender: FDA-Public Use
  Company Number: FK201301429

PATIENT
  Age: 57 Year
  Sex: Female

DRUGS (2)
  1. ROPIVACAINE [Suspect]
     Indication: INDUCTION AND MAINTENANCE OF ANAESTHESIA
     Dosage: 75 MG, 1 IN 1 D, INTRAVENOUS (NOT OTHERWISE SPECIFIED)
     Route: 042
  2. LIDOCAINE [Suspect]
     Indication: INDUCTION AND MAINTENANCE OF ANAESTHESIA
     Dosage: 30 M, 1 IN 1 D, INTRAVENOUS (NOT OTHEWISE SPECIFIED)
     Route: 042

REACTIONS (9)
  - Depressed level of consciousness [None]
  - Pain [None]
  - Miosis [None]
  - Sedation [None]
  - Unresponsive to stimuli [None]
  - Toxicity to various agents [None]
  - Confusional state [None]
  - Agitation [None]
  - Myoclonus [None]
